FAERS Safety Report 17500390 (Version 2)
Quarter: 2021Q2

REPORT INFORMATION
  Report Type: Spontaneous
  Country: US (occurrence: US)
  Receive Date: 20200305
  Receipt Date: 20210413
  Transmission Date: 20210716
  Serious: Yes (Other)
  Sender: FDA-Public Use
  Company Number: US-ASTRAZENECA-2020SE29058

PATIENT
  Age: 56 Year
  Sex: Female
  Weight: 88.5 kg

DRUGS (47)
  1. ATORVASTATIN [Concomitant]
     Active Substance: ATORVASTATIN
     Indication: BLOOD CHOLESTEROL INCREASED
     Dates: start: 201305
  2. WARFARIN [Concomitant]
     Active Substance: WARFARIN
     Dates: start: 201701, end: 201801
  3. TEMAZEPAM. [Concomitant]
     Active Substance: TEMAZEPAM
     Dates: start: 201701, end: 201801
  4. NALOXONE [Concomitant]
     Active Substance: NALOXONE
     Dates: start: 201701, end: 201801
  5. CELEXA [Concomitant]
     Active Substance: CITALOPRAM HYDROBROMIDE
     Dates: start: 201701, end: 201801
  6. ZANTAC [Concomitant]
     Active Substance: RANITIDINE HYDROCHLORIDE
     Dates: start: 201701, end: 201801
  7. CALCIUM CARBONATE. [Concomitant]
     Active Substance: CALCIUM CARBONATE
     Dates: start: 201701, end: 201801
  8. IBUPROFEN. [Concomitant]
     Active Substance: IBUPROFEN
     Dates: start: 201701, end: 201801
  9. ACIDOPHILUS [Concomitant]
     Active Substance: LACTOBACILLUS ACIDOPHILUS
     Dates: start: 201701, end: 201801
  10. SEREVENT DISKUS [Concomitant]
     Active Substance: SALMETEROL XINAFOATE
     Dates: start: 201701, end: 201801
  11. MULTIVITAMIN [Concomitant]
     Active Substance: VITAMINS
     Indication: VITAL CAPACITY
     Dates: start: 200812
  12. MUPIROCIN. [Concomitant]
     Active Substance: MUPIROCIN
     Dates: start: 201701, end: 201801
  13. MELOXICAM. [Concomitant]
     Active Substance: MELOXICAM
     Dates: start: 201701, end: 201801
  14. DOCUSATE [Concomitant]
     Active Substance: DOCUSATE
     Dates: start: 201701, end: 201801
  15. ZINC ACETATE [Concomitant]
     Active Substance: ZINC ACETATE
     Dates: start: 201701, end: 201801
  16. ZOCOR [Concomitant]
     Active Substance: SIMVASTATIN
     Dates: start: 201701, end: 201801
  17. PRILOSEC OTC [Suspect]
     Active Substance: OMEPRAZOLE MAGNESIUM
     Indication: GASTROOESOPHAGEAL REFLUX DISEASE
     Route: 048
     Dates: start: 200601, end: 201607
  18. CYMBALTA [Concomitant]
     Active Substance: DULOXETINE HYDROCHLORIDE
     Indication: ANXIETY
     Dates: start: 201303
  19. CYMBALTA [Concomitant]
     Active Substance: DULOXETINE HYDROCHLORIDE
     Indication: DEPRESSION
     Dates: start: 201303
  20. PROAIR HFA [Concomitant]
     Active Substance: ALBUTEROL SULFATE
     Indication: ASTHMA
     Dates: start: 201301
  21. DULOXETINE. [Concomitant]
     Active Substance: DULOXETINE
     Dates: start: 201701, end: 201801
  22. CYTOMEL [Concomitant]
     Active Substance: LIOTHYRONINE SODIUM
     Dates: start: 201701, end: 201801
  23. AZMACORT [Concomitant]
     Active Substance: TRIAMCINOLONE ACETONIDE
     Dates: start: 201701, end: 201801
  24. PRILOSEC OTC [Suspect]
     Active Substance: OMEPRAZOLE MAGNESIUM
     Indication: GASTROOESOPHAGEAL REFLUX DISEASE
     Route: 048
     Dates: start: 2006, end: 2016
  25. FAMOTIDINE. [Concomitant]
     Active Substance: FAMOTIDINE
     Dates: start: 201701, end: 201801
  26. AMITRYPTYLINE [Concomitant]
     Active Substance: AMITRIPTYLINE
     Dates: start: 201701, end: 201801
  27. HYDROCODON [Concomitant]
     Active Substance: HYDROCODONE
     Dates: start: 201701, end: 201801
  28. OMEGA?3 ACIDS [Concomitant]
     Active Substance: OMEGA-3 FATTY ACIDS
     Indication: CARDIAC DISORDER
     Dates: start: 200812
  29. ZANTAC [Concomitant]
     Active Substance: RANITIDINE HYDROCHLORIDE
     Dates: start: 201609, end: 201701
  30. RANITIDINE. [Concomitant]
     Active Substance: RANITIDINE
     Dates: start: 201701, end: 201801
  31. LIOTHYRONINE [Concomitant]
     Active Substance: LIOTHYRONINE
     Dates: start: 201701, end: 201801
  32. PRILOSEC [Suspect]
     Active Substance: OMEPRAZOLE MAGNESIUM
     Indication: GASTROOESOPHAGEAL REFLUX DISEASE
     Route: 048
     Dates: start: 2006, end: 2016
  33. PRILOSEC [Suspect]
     Active Substance: OMEPRAZOLE MAGNESIUM
     Indication: GASTROOESOPHAGEAL REFLUX DISEASE
     Dosage: GENERIC
     Route: 065
     Dates: end: 2016
  34. LEVOTHYROXINE. [Concomitant]
     Active Substance: LEVOTHYROXINE
     Indication: THYROID DISORDER
     Dates: start: 201503
  35. COENZYME Q10 [Concomitant]
     Active Substance: DIETARY SUPPLEMENT\UBIDECARENONE
     Indication: CARDIAC DISORDER
     Dates: start: 201203
  36. VITAMIN D [Concomitant]
     Active Substance: VITAMIN D NOS
     Indication: VITAL CAPACITY
     Dates: start: 200812
  37. VITAMIN D [Concomitant]
     Active Substance: VITAMIN D NOS
     Indication: BONE DEFORMITY
     Dates: start: 200812
  38. MAGNESIUM HYDROXIDE. [Concomitant]
     Active Substance: MAGNESIUM HYDROXIDE
     Dates: start: 201701, end: 201801
  39. CLINDAMYCIN. [Concomitant]
     Active Substance: CLINDAMYCIN
     Dates: start: 201701, end: 201801
  40. UBIQUINONE [Concomitant]
     Active Substance: DIETARY SUPPLEMENT\UBIDECARENONE
     Dates: start: 201701, end: 201801
  41. PRILOSEC [Suspect]
     Active Substance: OMEPRAZOLE MAGNESIUM
     Indication: GASTROOESOPHAGEAL REFLUX DISEASE
     Route: 048
     Dates: start: 200601, end: 201607
  42. LEVOTHYROXINE. [Concomitant]
     Active Substance: LEVOTHYROXINE
     Dates: start: 201701, end: 201801
  43. ONDANSETRON [Concomitant]
     Active Substance: ONDANSETRON
     Dates: start: 201701, end: 201801
  44. OXYCODONE [Concomitant]
     Active Substance: OXYCODONE
     Dates: start: 201701, end: 201801
  45. SIMVASTATIN. [Concomitant]
     Active Substance: SIMVASTATIN
     Dates: start: 201701, end: 201801
  46. LIPITOR [Concomitant]
     Active Substance: ATORVASTATIN CALCIUM
     Dates: start: 201701, end: 201801
  47. ALEVE [Concomitant]
     Active Substance: NAPROXEN SODIUM
     Dates: start: 201701, end: 201801

REACTIONS (2)
  - Tubulointerstitial nephritis [Unknown]
  - Chronic kidney disease [Not Recovered/Not Resolved]

NARRATIVE: CASE EVENT DATE: 2007
